FAERS Safety Report 20864951 (Version 2)
Quarter: 2022Q2

REPORT INFORMATION
  Report Type: Spontaneous
  Country: JP (occurrence: JP)
  Receive Date: 20220524
  Receipt Date: 20220527
  Transmission Date: 20220721
  Serious: Yes (Other)
  Sender: FDA-Public Use
  Company Number: JP-ASTRAZENECA-220026993_010230_P_1

PATIENT

DRUGS (3)
  1. ZOLADEX [Suspect]
     Active Substance: GOSERELIN ACETATE
     Indication: Uterine leiomyoma
     Dosage: 1.8 MILLIGRAM, EVERY 4 WEEKS
     Route: 058
     Dates: start: 20220418
  2. ZOLADEX [Suspect]
     Active Substance: GOSERELIN ACETATE
     Indication: Uterine leiomyoma
     Dosage: UNK
     Route: 065
  3. HYALURONATE SODIUM [Concomitant]
     Active Substance: HYALURONATE SODIUM
     Indication: Product used for unknown indication
     Dosage: DOSE UNKNOWN
     Route: 047

REACTIONS (9)
  - Suicidal ideation [Recovering/Resolving]
  - Genital haemorrhage [Unknown]
  - Irritability [Recovering/Resolving]
  - Piloerection [Recovering/Resolving]
  - Presbyopia [Recovering/Resolving]
  - Eye opacity [Unknown]
  - Constipation [Recovering/Resolving]
  - Alopecia [Recovering/Resolving]
  - Off label use [Unknown]

NARRATIVE: CASE EVENT DATE: 20220101
